FAERS Safety Report 11695389 (Version 2)
Quarter: 2015Q4

REPORT INFORMATION
  Report Type: Spontaneous
  Country: US (occurrence: US)
  Receive Date: 20151104
  Receipt Date: 20151127
  Transmission Date: 20160304
  Serious: No
  Sender: FDA-Public Use
  Company Number: US-AMGEN-USASP2015113265

PATIENT
  Age: 60 Year
  Sex: Male

DRUGS (1)
  1. ENBREL [Suspect]
     Active Substance: ETANERCEPT
     Indication: RHEUMATOID ARTHRITIS
     Dosage: UNK, EVERY MONDAY
     Route: 065
     Dates: start: 201411

REACTIONS (3)
  - Incorrect dose administered [Unknown]
  - Accidental exposure to product [Unknown]
  - Device issue [Unknown]

NARRATIVE: CASE EVENT DATE: 2015
